FAERS Safety Report 16619314 (Version 1)
Quarter: 2019Q3

REPORT INFORMATION
  Report Type: Spontaneous
  Country: FR (occurrence: FR)
  Receive Date: 20190723
  Receipt Date: 20190723
  Transmission Date: 20191004
  Serious: No
  Sender: FDA-Public Use
  Company Number: FR-BEH-2019104685

PATIENT
  Age: 75 Year
  Sex: Female
  Weight: 59.3 kg

DRUGS (1)
  1. HIZENTRA [Suspect]
     Active Substance: HUMAN IMMUNOGLOBULIN G
     Indication: VASCULITIS
     Route: 058
     Dates: start: 20190709, end: 20190709

REACTIONS (3)
  - Rash [Recovered/Resolved]
  - Product use in unapproved indication [Unknown]
  - No adverse event [Unknown]

NARRATIVE: CASE EVENT DATE: 20190709
